FAERS Safety Report 5228359-6 (Version None)
Quarter: 2007Q1

REPORT INFORMATION
  Report Type: 
  Country: None (occurrence: None)
  Receive Date: 20070205
  Receipt Date: 20070123
  Transmission Date: 20070707
  Serious: Yes (Other)
  Sender: FDA-Public Use
  Company Number: US-JNJFOC-20070200391

PATIENT
  Age: 64 Year
  Sex: Female

DRUGS (3)
  1. IBUPROFEN [Suspect]
     Indication: LIMB DISCOMFORT
  2. IBUPROFEN [Suspect]
     Indication: BACK DISORDER
     Dosage: 200MG 2-3X/DAY FOR ^SOME TIME^
  3. ASPARTAME [Concomitant]

REACTIONS (2)
  - SURGERY [None]
  - TENDONITIS [None]
